FAERS Safety Report 5756995-7 (Version None)
Quarter: 2008Q2

REPORT INFORMATION
  Report Type: 
  Country: None (occurrence: None)
  Receive Date: 20080603
  Receipt Date: 20080521
  Transmission Date: 20081010
  Serious: Yes (Hospitalization)
  Sender: FDA-Public Use
  Company Number: GR-ELI_LILLY_AND_COMPANY-GR200805004436

PATIENT
  Age: 77 Year
  Sex: Male
  Weight: 65 kg

DRUGS (7)
  1. ALIMTA [Suspect]
     Indication: LUNG ADENOCARCINOMA
     Dosage: 500 MG/M2, UNK
     Route: 042
     Dates: start: 20080204
  2. CARBOPLATIN [Concomitant]
     Indication: NON-SMALL CELL LUNG CANCER
     Dosage: UNK, ONCE IN THIRD WEEK OF TREATMENT
     Route: 042
     Dates: start: 20080204
  3. SINTROM [Concomitant]
     Dosage: UNK UNK, DAILY (1/D)
     Route: 048
  4. DILTIAZEM HCL [Concomitant]
     Dosage: UNK UNK, 2/D
     Route: 048
  5. ANGORON [Concomitant]
     Dosage: UNK UNK, DAILY (1/D)
     Route: 048
  6. ZOCOR [Concomitant]
     Dosage: UNK UNK, DAILY (1/D)
     Route: 048
  7. LOSEC I.V. [Concomitant]
     Dosage: UNK UNK, 2/D
     Route: 048

REACTIONS (2)
  - ANAEMIA [None]
  - THROMBOCYTOPENIA [None]
